FAERS Safety Report 5024799-9 (Version None)
Quarter: 2006Q2

REPORT INFORMATION
  Report Type: 
  Country: None (occurrence: None)
  Receive Date: 20060426
  Receipt Date: 20060217
  Transmission Date: 20061013
  Serious: Yes (Other)
  Sender: FDA-Public Use
  Company Number: 2006025704

PATIENT
  Age: 86 Year
  Sex: Female

DRUGS (6)
  1. LYRICA [Suspect]
     Indication: DIABETIC NEUROPATHY
     Dosage: 100 MG (50 MG,2 IN 1 D)
     Dates: start: 20051101
  2. WARFARIN (WARFARIN) [Concomitant]
  3. LANOXIN [Concomitant]
  4. ALL OTHER THERAPEUTIC PRODUCTS (ALL OTHER THERAPEUTIC PRODUCTS) [Concomitant]
  5. PROCAINAMIDE [Concomitant]
  6. CHEMOTHERAPY NOS (CHEMOTHERAPY NOS) [Concomitant]

REACTIONS (4)
  - DRUG INEFFECTIVE [None]
  - DYSPNOEA [None]
  - PITTING OEDEMA [None]
  - RASH [None]
